FAERS Safety Report 9370906 (Version 3)
Quarter: 2014Q1

REPORT INFORMATION
  Report Type: Spontaneous
  Country: DE (occurrence: DE)
  Receive Date: 20130627
  Receipt Date: 20140113
  Transmission Date: 20141002
  Serious: Yes (Hospitalization)
  Sender: FDA-Public Use
  Company Number: DE-MERCK-1306DEU010761

PATIENT
  Age: 81 Year
  Sex: Female
  Weight: 90 kg

DRUGS (4)
  1. CASPOFUNGIN ACETATE [Suspect]
     Indication: CANDIDA INFECTION
     Dosage: 70 MG, UNK
     Route: 042
     Dates: start: 20121121, end: 20121214
  2. MEROPENEM [Concomitant]
     Dosage: RESTARTED ON DAY 10
     Dates: start: 20121121
  3. MEROPENEM [Concomitant]
     Dosage: FROM DAY 5 TO 8
     Dates: start: 20121116, end: 20121119
  4. PIPERACILLIN SODIUM (+) TAZOBACTAM SODIUM [Concomitant]
     Dosage: DISCONTINUED ON DAY 5
     Dates: start: 201211, end: 20121119

REACTIONS (1)
  - Cardiac index decreased [Recovered/Resolved]
